FAERS Safety Report 9355052 (Version 2)
Quarter: 2013Q4

REPORT INFORMATION
  Report Type: Spontaneous
  Country: JP (occurrence: JP)
  Receive Date: 20130619
  Receipt Date: 20131212
  Transmission Date: 20140711
  Serious: Yes (Hospitalization, Other)
  Sender: FDA-Public Use
  Company Number: JP-UCBSA-089418

PATIENT
  Age: 20 Year
  Sex: Male

DRUGS (6)
  1. E KEPPRA [Suspect]
     Indication: EPILEPSY
     Route: 048
  2. E KEPPRA [Suspect]
     Indication: EPILEPSY
     Route: 048
  3. SODIUM VALPROATE [Concomitant]
     Indication: EPILEPSY
     Dosage: DAILY DOSE: 800 MG
     Route: 048
  4. CARBAMAZEPINE [Concomitant]
     Indication: EPILEPSY
     Dosage: DAILY DOSE: 600 MG
     Route: 048
  5. CLOBAZAM [Concomitant]
     Indication: EPILEPSY
     Dosage: DAILY DOSE: 40 MG
     Route: 048
  6. GABAPEN [Concomitant]
     Indication: EPILEPSY
     Dosage: DAILY DOSE: 1800 MG
     Route: 048

REACTIONS (3)
  - Status epilepticus [Unknown]
  - Disinhibition [Recovering/Resolving]
  - Abnormal behaviour [Recovering/Resolving]
